FAERS Safety Report 8585116-0 (Version None)
Quarter: 2012Q3

REPORT INFORMATION
  Report Type: 
  Country: None (occurrence: None)
  Receive Date: 20120810
  Receipt Date: 20120803
  Transmission Date: 20120928
  Serious: Yes (Other)
  Sender: FDA-Public Use
  Company Number: PL-GENZYME-FLUD-1001530

PATIENT
  Age: 11 Year
  Sex: Female

DRUGS (9)
  1. DEFERASIROX [Concomitant]
     Dosage: 12 MG/KG, UNK
     Route: 048
  2. NEUPOGEN [Concomitant]
     Indication: PRODUCT USED FOR UNKNOWN INDICATION
     Dosage: UNK
     Route: 065
  3. DEFERASIROX [Concomitant]
     Indication: HAEMOSIDEROSIS
     Dosage: 35.4 MG/KG, UNK
     Route: 048
  4. BUSULFAN [Concomitant]
     Indication: BONE MARROW CONDITIONING REGIMEN
     Dosage: 2 MG/KG, UNK
     Route: 065
  5. CIPROFLOXACIN [Concomitant]
     Indication: PROPHYLAXIS
     Dosage: UNK
     Route: 065
  6. THYMOGLOBULIN [Concomitant]
     Indication: BONE MARROW CONDITIONING REGIMEN
     Dosage: 60 MG/KG, UNK
     Route: 065
  7. CYCLOSPORINE [Concomitant]
     Indication: PROPHYLAXIS AGAINST GRAFT VERSUS HOST DISEASE
     Dosage: UNK
     Route: 065
  8. FLUDARA [Suspect]
     Indication: BONE MARROW CONDITIONING REGIMEN
     Dosage: 150 MG/M2, UNK
     Route: 065
  9. 03-OKT [Concomitant]
     Indication: PROPHYLAXIS AGAINST GRAFT VERSUS HOST DISEASE
     Dosage: UNK
     Route: 065

REACTIONS (4)
  - BK VIRUS INFECTION [None]
  - HAEMOCHROMATOSIS [None]
  - CYTOMEGALOVIRUS INFECTION [None]
  - CYSTITIS HAEMORRHAGIC [None]
